FAERS Safety Report 17477521 (Version 1)
Quarter: 2020Q1

REPORT INFORMATION
  Report Type: Spontaneous
  Country: US (occurrence: US)
  Receive Date: 20200228
  Receipt Date: 20200228
  Transmission Date: 20200409
  Serious: No
  Sender: FDA-Public Use
  Company Number: US-SMITH AND NEPHEW, INC-2019SMT00078

PATIENT
  Age: 76 Year
  Sex: Female

DRUGS (3)
  1. CAROLON WRAP [Concomitant]
     Dosage: UNK
  2. COLLAGENASE SANTYL [Suspect]
     Active Substance: COLLAGENASE CLOSTRIDIUM HISTOLYTICUM
     Indication: WOUND
     Dosage: UNK
     Route: 061
  3. ANASEPT [Concomitant]
     Dosage: IF DID NOT SHOWER

REACTIONS (3)
  - Burning sensation [Unknown]
  - Application site dryness [Not Recovered/Not Resolved]
  - Swelling [Unknown]

NARRATIVE: CASE EVENT DATE: 20191014
